FAERS Safety Report 19419364 (Version 1)
Quarter: 2021Q2

REPORT INFORMATION
  Report Type: Spontaneous
  Country: ES (occurrence: ES)
  Receive Date: 20210615
  Receipt Date: 20210615
  Transmission Date: 20210717
  Serious: Yes (Disabling, Other)
  Sender: FDA-Public Use
  Company Number: ES-GRIFOLS-BIG0014880

PATIENT
  Age: 45 Year
  Sex: Male

DRUGS (2)
  1. HUMAN SERUM ALBUMIN [Suspect]
     Active Substance: ALBUMIN HUMAN
     Indication: HEPATORENAL SYNDROME
     Dosage: UNK UNKNOWN, UNKNOWN
     Route: 042
  2. TERLIPRESSIN [Suspect]
     Active Substance: TERLIPRESSIN
     Indication: HEPATORENAL SYNDROME
     Dosage: 1 MILLIGRAM, Q.4H.
     Route: 042

REACTIONS (2)
  - Skin lesion [Recovering/Resolving]
  - Soft tissue necrosis [Recovered/Resolved with Sequelae]
